FAERS Safety Report 10162586 (Version 1)
Quarter: 2014Q2

REPORT INFORMATION
  Report Type: Spontaneous
  Country: CN (occurrence: CN)
  Receive Date: 20140509
  Receipt Date: 20140509
  Transmission Date: 20141212
  Serious: Yes (Hospitalization)
  Sender: FDA-Public Use
  Company Number: CN-PFIZER INC-2014124254

PATIENT
  Age: 61 Year
  Sex: Male

DRUGS (5)
  1. ATORVASTATIN CALCIUM [Suspect]
     Indication: CEREBRAL INFARCTION
     Dosage: 10 MG, DAILY
     Route: 048
     Dates: start: 201301, end: 201302
  2. ROXITHROMYCIN [Interacting]
     Indication: TOOTHACHE
     Dosage: 300 MG, DAILY
     Route: 048
     Dates: start: 20130211, end: 201302
  3. CLOPIDOGREL [Concomitant]
     Indication: CEREBRAL INFARCTION
     Dosage: 50 MG, DAILY
     Dates: start: 201301
  4. LEVAMLODIPINE MALEATE [Concomitant]
     Indication: CEREBRAL INFARCTION
     Dosage: 2.5 MG, DAILY
     Dates: start: 201301
  5. GINKGO BILOBA [Concomitant]
     Dosage: 3 DF, DAILY

REACTIONS (2)
  - Drug interaction [Recovered/Resolved]
  - Myositis [Recovered/Resolved]
